FAERS Safety Report 10211172 (Version 1)
Quarter: 2014Q2

REPORT INFORMATION
  Report Type: Spontaneous
  Country: US (occurrence: US)
  Receive Date: 20140602
  Receipt Date: 20140602
  Transmission Date: 20141212
  Serious: No
  Sender: FDA-Public Use
  Company Number: US-ABBVIE-13P-163-1157844-00

PATIENT
  Age: 46 Year
  Sex: Male
  Weight: 61.29 kg

DRUGS (1)
  1. MARINOL [Suspect]
     Indication: UNEVALUABLE EVENT
     Dosage: ONE CAPSULE FOR BREAKFAST AND DINNER; TWO CAPSULES AT LUNCH.
     Dates: start: 2010

REACTIONS (1)
  - Insomnia [Not Recovered/Not Resolved]
